FAERS Safety Report 19005113 (Version 1)
Quarter: 2021Q1

REPORT INFORMATION
  Report Type: Spontaneous
  Country: ES (occurrence: ES)
  Receive Date: 20210312
  Receipt Date: 20210312
  Transmission Date: 20210420
  Serious: Yes (Other)
  Sender: FDA-Public Use
  Company Number: ES-US-PROVELL PHARMACEUTICALS LLC-E2B_90082667

PATIENT
  Age: 64 Year
  Sex: Female
  Weight: 58 kg

DRUGS (1)
  1. EUTIROX [Suspect]
     Active Substance: LEVOTHYROXINE SODIUM
     Indication: SECONDARY HYPOTHYROIDISM
     Dosage: 100 TABLETS.
     Route: 048

REACTIONS (7)
  - Hypotension [Unknown]
  - Bradyphrenia [Unknown]
  - Apathy [Unknown]
  - Fatigue [Unknown]
  - Headache [Unknown]
  - Sluggishness [Unknown]
  - Feeling cold [Unknown]
